FAERS Safety Report 15163404 (Version 1)
Quarter: 2018Q3

REPORT INFORMATION
  Report Type: Report from Study
  Country: ES (occurrence: ES)
  Receive Date: 20180719
  Receipt Date: 20180719
  Transmission Date: 20181010
  Serious: Yes (Hospitalization)
  Sender: FDA-Public Use
  Company Number: ES-TEVA-2018-ES-928627

PATIENT
  Age: 56 Year
  Sex: Male

DRUGS (7)
  1. ETOPOSIDO [Suspect]
     Active Substance: ETOPOSIDE
     Dosage: (3 CICLO)
     Route: 042
     Dates: start: 20170223, end: 20170226
  2. POLARAMINE [Concomitant]
     Active Substance: DEXCHLORPHENIRAMINE MALEATE
     Dosage: PREMEDICACION
     Route: 042
     Dates: start: 20170223, end: 20170223
  3. CISPLATINO [Suspect]
     Active Substance: CISPLATIN
     Dosage: 25MG/M2 (3 CICLO)
     Route: 042
     Dates: start: 20170223, end: 20170226
  4. PARACETAMOL [Concomitant]
     Active Substance: ACETAMINOPHEN
     Dosage: 1GR PREMEDICACION
     Route: 042
     Dates: start: 20170223, end: 20170223
  5. METILPREDNISOLONA [Suspect]
     Active Substance: METHYLPREDNISOLONE
     Route: 042
     Dates: start: 20170223, end: 20170227
  6. CITARABINA [Suspect]
     Active Substance: CYTARABINE
     Dosage: 2G/M?
     Route: 042
     Dates: start: 20170223, end: 20170223
  7. RITUXIMAB. [Suspect]
     Active Substance: RITUXIMAB
     Route: 042
     Dates: start: 20170223, end: 20170223

REACTIONS (1)
  - Acute kidney injury [Recovered/Resolved with Sequelae]

NARRATIVE: CASE EVENT DATE: 20170226
